FAERS Safety Report 22844399 (Version 2)
Quarter: 2023Q4

REPORT INFORMATION
  Report Type: Report from Study
  Country: US (occurrence: US)
  Receive Date: 20230821
  Receipt Date: 20231115
  Transmission Date: 20240109
  Serious: Yes (Other)
  Sender: FDA-Public Use
  Company Number: US-MYLANLABS-2023M1054175

PATIENT
  Sex: Female
  Weight: 105.6 kg

DRUGS (1)
  1. GLATIRAMER ACETATE [Suspect]
     Active Substance: GLATIRAMER ACETATE
     Indication: Multiple sclerosis
     Dosage: UNK
     Route: 058

REACTIONS (7)
  - Multiple sclerosis [Unknown]
  - Injection site mass [Unknown]
  - Injection site pruritus [Recovering/Resolving]
  - Injection site urticaria [Recovering/Resolving]
  - Injection site warmth [Unknown]
  - Injection site pain [Unknown]
  - Maternal exposure during pregnancy [Recovered/Resolved]
